FAERS Safety Report 15114009 (Version 4)
Quarter: 2020Q1

REPORT INFORMATION
  Report Type: Spontaneous
  Country: AT (occurrence: AT)
  Receive Date: 20180706
  Receipt Date: 20200109
  Transmission Date: 20200409
  Serious: Yes (Hospitalization)
  Sender: FDA-Public Use
  Company Number: AT-AMGEN-AUTNI2018090741

PATIENT
  Age: 75 Year
  Sex: Female
  Weight: 105 kg

DRUGS (36)
  1. XGEVA [Suspect]
     Active Substance: DENOSUMAB
     Indication: HER-2 POSITIVE BREAST CANCER
     Dosage: 120 MILLIGRAM, Q4WK
     Route: 058
     Dates: start: 20171109
  2. TRASTUZUMAB EMTANSINE [Suspect]
     Active Substance: ADO-TRASTUZUMAB EMTANSINE
     Indication: BREAST CANCER
     Dosage: 3.6 MILLIGRAM/KILOGRAM, Q3WK
     Route: 042
     Dates: start: 20180509
  3. TRANSTEC [Concomitant]
     Active Substance: BUPRENORPHINE
     Dosage: UNK
     Route: 065
     Dates: start: 20171227, end: 20180519
  4. CONCOR [Concomitant]
     Active Substance: BISOPROLOL FUMARATE
     Dosage: UNK
     Route: 065
     Dates: start: 20180409, end: 20180519
  5. ERYPO [Concomitant]
     Indication: ANAEMIA
     Dosage: UNK
     Route: 065
     Dates: start: 20180329, end: 20180519
  6. LASIX [Concomitant]
     Active Substance: FUROSEMIDE
     Dosage: UNK
     Route: 065
     Dates: start: 20180329, end: 20180519
  7. VELLOFENT [Concomitant]
     Dosage: UNK
     Dates: start: 20180419, end: 20180519
  8. LYRICA [Concomitant]
     Active Substance: PREGABALIN
     Dosage: UNK
     Dates: start: 20180409, end: 20180425
  9. PANTOLOC [Concomitant]
     Active Substance: PANTOPRAZOLE SODIUM
     Dosage: UNK
     Route: 065
     Dates: start: 20171113, end: 20180519
  10. DIBONDRIN [Concomitant]
     Active Substance: DIPHENHYDRAMINE HYDROCHLORIDE
     Dosage: UNK
     Route: 065
     Dates: start: 20171113, end: 20180329
  11. ALOXI [Concomitant]
     Active Substance: PALONOSETRON HYDROCHLORIDE
     Dosage: UNK
     Dates: start: 20180103, end: 20180307
  12. CEFUROXIME. [Concomitant]
     Active Substance: CEFUROXIME
     Dosage: UNK
     Dates: start: 20180419, end: 20180424
  13. PACLITAXEL. [Suspect]
     Active Substance: PACLITAXEL
     Indication: HER-2 POSITIVE BREAST CANCER
     Dosage: 267 MILLIGRAM, Q3WK
     Route: 042
     Dates: start: 20180103
  14. MAGNOSOLV [Concomitant]
     Dosage: UNK
     Route: 065
     Dates: start: 20171115, end: 20180425
  15. ANAEROBEX [Concomitant]
     Active Substance: METRONIDAZOLE
     Indication: DIARRHOEA
     Dosage: UNK
     Dates: start: 20180425, end: 20180501
  16. NOVALGIN (METAMIZOLE SODIUM) [Concomitant]
     Active Substance: METAMIZOLE SODIUM
     Dosage: UNK
     Route: 065
     Dates: start: 20171215
  17. GLANDOMED [Concomitant]
     Dosage: UNK
     Route: 065
     Dates: start: 20171115, end: 20180519
  18. CALCIDURAN [Concomitant]
     Active Substance: ASCORBIC ACID\CALCIUM PHOSPHATE\CHOLECALCIFEROL\CITRIC ACID MONOHYDRATE
     Dosage: UNK
     Route: 065
     Dates: start: 20171115, end: 20180519
  19. LONQUEX [Concomitant]
     Active Substance: LIPEGFILGRASTIM
     Dosage: UNK
     Route: 065
     Dates: start: 20171113, end: 20180329
  20. LASILACTON [Concomitant]
     Active Substance: FUROSEMIDE\SPIRONOLACTONE
     Dosage: UNK
     Route: 065
     Dates: start: 20180101, end: 20180329
  21. NEODOLPASSE [Concomitant]
     Active Substance: DICLOFENAC SODIUM\ORPHENADRINE CITRATE
     Dosage: UNK
     Dates: start: 20180409, end: 20180417
  22. FRAGMIN [Concomitant]
     Active Substance: DALTEPARIN SODIUM
     Dosage: UNK
     Dates: start: 20180425, end: 20180427
  23. LOVENOX [Concomitant]
     Active Substance: ENOXAPARIN SODIUM
     Dosage: UNK
     Dates: start: 20180409, end: 20180419
  24. HYDAL [Concomitant]
     Active Substance: HYDROMORPHONE HYDROCHLORIDE
     Dosage: UNK
     Route: 065
     Dates: start: 20171115
  25. TEMGESIC [Concomitant]
     Active Substance: BUPRENORPHINE HYDROCHLORIDE
     Dosage: UNK
     Dates: start: 20180409, end: 20180415
  26. PERTUZUMAB. [Suspect]
     Active Substance: PERTUZUMAB
     Indication: HER-2 POSITIVE BREAST CANCER
     Dosage: 840 MILLIGRAM, Q3WK
     Route: 042
     Dates: start: 20171113
  27. FORTECORTIN [Concomitant]
     Active Substance: DEXAMETHASONE
     Dosage: UNK
     Route: 065
     Dates: start: 20171113, end: 20180509
  28. DRONABINOL. [Concomitant]
     Active Substance: DRONABINOL
     Dosage: UNK
     Route: 065
     Dates: start: 20180321, end: 20180329
  29. VOLTAREN [Concomitant]
     Active Substance: DICLOFENAC SODIUM
     Dosage: UNK
     Route: 065
     Dates: start: 20171215, end: 20180519
  30. MOLAXOLE [Concomitant]
     Active Substance: POLYETHYLENE GLYCOL 3350\POTASSIUM CHLORIDE\SODIUM BICARBONATE\SODIUM CHLORIDE
     Dosage: UNK
     Dates: start: 20180409, end: 20180415
  31. TRASTUZUMAB. [Suspect]
     Active Substance: TRASTUZUMAB
     Indication: HER-2 POSITIVE BREAST CANCER
     Dosage: 6.4 MILLIGRAM/KILOGRAM, Q3WK
     Route: 042
     Dates: start: 20171113
  32. DOCETAXEL. [Suspect]
     Active Substance: DOCETAXEL
     Indication: HER-2 POSITIVE BREAST CANCER
     Dosage: 60 MILLIGRAM/SQ. METER, Q3WK
     Route: 042
     Dates: start: 20171113
  33. ZOFRAN [Concomitant]
     Active Substance: ONDANSETRON HYDROCHLORIDE
     Dosage: UNK
     Route: 065
     Dates: start: 20171113, end: 20180519
  34. THYREX [Concomitant]
     Active Substance: LEVOTHYROXINE SODIUM
     Dosage: UNK
     Route: 065
     Dates: start: 20180519
  35. HALDOL [Concomitant]
     Active Substance: HALOPERIDOL
     Dosage: UNK
     Dates: start: 20180409, end: 20180519
  36. MONOFER [Concomitant]
     Active Substance: IRON ISOMALTOSIDE 1000
     Indication: ANAEMIA
     Dosage: 100 MILLIGRAM PER MILLILITRE
     Dates: start: 20180410, end: 20180410

REACTIONS (3)
  - Diarrhoea [Recovered/Resolved]
  - Nocturnal dyspnoea [Unknown]
  - Off label use [Unknown]

NARRATIVE: CASE EVENT DATE: 20180404
